FAERS Safety Report 21553209 (Version 1)
Quarter: 2022Q4

REPORT INFORMATION
  Report Type: Spontaneous
  Country: None (occurrence: US)
  Receive Date: 20221104
  Receipt Date: 20221104
  Transmission Date: 20230113
  Serious: Yes (Hospitalization, Other)
  Sender: FDA-Public Use
  Company Number: US-Ajanta Pharma USA Inc.-2134497

PATIENT
  Sex: Male

DRUGS (2)
  1. FENOFIBRATE [Suspect]
     Active Substance: FENOFIBRATE
     Indication: Blood triglycerides increased
  2. FENOFIBRATE [Suspect]
     Active Substance: FENOFIBRATE

REACTIONS (7)
  - Blood triglycerides increased [Unknown]
  - Cardiac disorder [Unknown]
  - Pancreatitis [Unknown]
  - Blood glucose increased [Unknown]
  - Renal disorder [Unknown]
  - Malaise [Unknown]
  - Intentional dose omission [Not Recovered/Not Resolved]

NARRATIVE: CASE EVENT DATE: 20220101
